FAERS Safety Report 8058657-2 (Version None)
Quarter: 2012Q1

REPORT INFORMATION
  Report Type: 
  Country: None (occurrence: None)
  Receive Date: 20120120
  Receipt Date: 20120110
  Transmission Date: 20120608
  Serious: Yes (Hospitalization)
  Sender: FDA-Public Use
  Company Number: US-BAYER-2011-074901

PATIENT
  Sex: Female
  Weight: 79.365 kg

DRUGS (4)
  1. NSAID'S [Concomitant]
     Dosage: UNK
     Route: 048
     Dates: start: 20080101
  2. POTASSIUM CHLORIDE [Concomitant]
     Indication: SUPPLEMENTATION THERAPY
     Dosage: UNK
     Route: 048
     Dates: start: 20090101
  3. DROSPIRENONE AND ETHINYL ESTRADIOL [Suspect]
     Dosage: UNK
     Dates: start: 20080101, end: 20100101
  4. YAZ [Suspect]
     Indication: PRODUCT USED FOR UNKNOWN INDICATION
     Dosage: UNK
     Dates: start: 20080101, end: 20100101

REACTIONS (3)
  - GALLBLADDER DISORDER [None]
  - PAIN [None]
  - INJURY [None]
